FAERS Safety Report 13952700 (Version 2)
Quarter: 2017Q3

REPORT INFORMATION
  Report Type: Spontaneous
  Country: US (occurrence: US)
  Receive Date: 20170911
  Receipt Date: 20170912
  Transmission Date: 20171128
  Serious: Yes (Other)
  Sender: FDA-Public Use
  Company Number: US-JNJFOC-20170827082

PATIENT
  Age: 68 Year
  Sex: Female
  Weight: 104.33 kg

DRUGS (3)
  1. TYLENOL 8 HR ARTHRITIS PAIN [Suspect]
     Active Substance: ACETAMINOPHEN
     Indication: ARTHRALGIA
     Dosage: 2 CAPLETS IN AFTERNOON AND THEN 2 CAPLETS AT NIGHT BEFORE BED
     Route: 048
     Dates: start: 20170820, end: 201708
  2. TYLENOL 8 HR ARTHRITIS PAIN [Suspect]
     Active Substance: ACETAMINOPHEN
     Indication: ARTHRALGIA
     Dosage: NEXT FEW DAYS SHE TOOK 2 CAPLETS 3 TIMES A DAY AND STUCK TO THAT
     Route: 048
     Dates: start: 201708, end: 20170827
  3. INSULIN [Concomitant]
     Active Substance: INSULIN NOS
     Indication: DIABETES MELLITUS
     Dosage: EVERYDAY
     Route: 065

REACTIONS (1)
  - Urinary retention [Recovered/Resolved]

NARRATIVE: CASE EVENT DATE: 20170823
